FAERS Safety Report 9817656 (Version 1)
Quarter: 2013Q4

REPORT INFORMATION
  Report Type: Spontaneous
  Country: US (occurrence: None)
  Receive Date: 20131223
  Receipt Date: 20131223
  Transmission Date: 20140711
  Serious: No
  Sender: FDA-Public Use
  Company Number: 218909

PATIENT
  Age: 59 Year
  Sex: Female

DRUGS (1)
  1. PICATO [Suspect]
     Indication: ACTINIC KERATOSIS
     Route: 061
     Dates: start: 20120910, end: 20120911

REACTIONS (7)
  - Burning sensation [None]
  - Skin exfoliation [None]
  - Erythema [None]
  - Swelling [None]
  - Drug administered at inappropriate site [None]
  - Incorrect drug administration duration [None]
  - Incorrect dose administered [None]
